FAERS Safety Report 8117163-7 (Version None)
Quarter: 2012Q1

REPORT INFORMATION
  Report Type: 
  Country: None (occurrence: None)
  Receive Date: 20120206
  Receipt Date: 20120128
  Transmission Date: 20120608
  Serious: Yes (Other)
  Sender: FDA-Public Use
  Company Number: US-ASTRAZENECA-2010SE59776

PATIENT
  Age: 62 Year
  Sex: Female
  Weight: 43.1 kg

DRUGS (5)
  1. TRAZODONE HCL [Concomitant]
     Indication: SLEEP DISORDER
     Dosage: HALF TO ONE AND HALF TABLET AT NIGHT
  2. ESTRADIOL [Concomitant]
  3. SEROQUEL [Suspect]
     Route: 048
     Dates: start: 20080101
  4. SEROQUEL [Suspect]
     Indication: BIPOLAR DISORDER
     Dosage: 25 MG-50 MG, AT NIGHT
     Route: 048
     Dates: start: 20030101, end: 20080101
  5. OMEPRAZOLE [Concomitant]
     Indication: GASTRITIS

REACTIONS (8)
  - LARYNGITIS [None]
  - BACK PAIN [None]
  - FALL [None]
  - PANIC ATTACK [None]
  - SPINAL FRACTURE [None]
  - THROAT CANCER [None]
  - INSOMNIA [None]
  - INFLUENZA [None]
